FAERS Safety Report 14471803 (Version 1)
Quarter: 2018Q1

REPORT INFORMATION
  Report Type: Report from Study
  Country: IR (occurrence: IR)
  Receive Date: 20180131
  Receipt Date: 20180131
  Transmission Date: 20180509
  Serious: Yes (Other)
  Sender: FDA-Public Use
  Company Number: IR-MYLANLABS-2018M1006251

PATIENT

DRUGS (1)
  1. PROPRANOLOL [Suspect]
     Active Substance: PROPRANOLOL HYDROCHLORIDE
     Indication: CYCLIC VOMITING SYNDROME
     Dosage: 1 MG/KG OF THE BODY WEIGHT PER DAY
     Route: 065

REACTIONS (2)
  - Wheezing [Unknown]
  - Bronchospasm [Unknown]
